FAERS Safety Report 15347631 (Version 2)
Quarter: 2018Q3

REPORT INFORMATION
  Report Type: Report from Study
  Country: US (occurrence: US)
  Receive Date: 20180904
  Receipt Date: 20180918
  Transmission Date: 20181010
  Serious: No
  Sender: FDA-Public Use
  Company Number: PHHY2018US090158

PATIENT
  Sex: Male

DRUGS (1)
  1. COSENTYX [Suspect]
     Active Substance: SECUKINUMAB
     Indication: PSORIATIC ARTHROPATHY
     Route: 058
     Dates: start: 201801

REACTIONS (4)
  - Cough [Recovered/Resolved]
  - Drug effect incomplete [Unknown]
  - Nasopharyngitis [Recovered/Resolved]
  - Sinusitis [Unknown]
